FAERS Safety Report 8561313-5 (Version None)
Quarter: 2012Q3

REPORT INFORMATION
  Report Type: 
  Country: None (occurrence: None)
  Receive Date: 20120727
  Receipt Date: 20120727
  Transmission Date: 20120928
  Serious: Yes (Hospitalization)
  Sender: FDA-Public Use
  Company Number: None

PATIENT
  Age: 64 Year
  Weight: 119.6 kg

DRUGS (15)
  1. HUMALOG [Concomitant]
  2. RANEXA [Concomitant]
  3. CARVEDILOL [Concomitant]
  4. VIT D3 [Concomitant]
  5. LANTUS [Concomitant]
  6. NITROGLYCERIN [Concomitant]
  7. VITAMIN B-12 [Concomitant]
  8. CLOPIDOGREL [Concomitant]
  9. LISINOPRIL [Concomitant]
  10. FUROSEMIDE [Concomitant]
  11. AMLODIPINE [Suspect]
     Indication: HYPERTENSION
     Dosage: 100 MG DAILY PO RECENT
     Route: 048
  12. ASPIRIN [Concomitant]
  13. FISH OIL [Concomitant]
  14. POT GLUC [Concomitant]
  15. IMDUR [Concomitant]

REACTIONS (2)
  - SYNCOPE [None]
  - HYPOTENSION [None]
